FAERS Safety Report 14781886 (Version 2)
Quarter: 2018Q2

REPORT INFORMATION
  Report Type: Spontaneous
  Country: NL (occurrence: NL)
  Receive Date: 20180420
  Receipt Date: 20180508
  Transmission Date: 20180711
  Serious: Yes (Other)
  Sender: FDA-Public Use
  Company Number: NL-AXELLIA-001577

PATIENT
  Age: 81 Year
  Sex: Male

DRUGS (21)
  1. RIFAMPICIN [Suspect]
     Active Substance: RIFAMPIN
     Indication: PNEUMONIA ASPIRATION
     Route: 042
  2. DEXAMETHASONE. [Concomitant]
     Active Substance: DEXAMETHASONE
  3. METRONIDAZOLE. [Concomitant]
     Active Substance: METRONIDAZOLE
  4. DALTEPARIN [Concomitant]
     Active Substance: DALTEPARIN
  5. MORPHINE [Concomitant]
     Active Substance: MORPHINE
  6. TEMAZEPAM. [Concomitant]
     Active Substance: TEMAZEPAM
  7. PARACETAMOL [Concomitant]
     Active Substance: ACETAMINOPHEN
  8. PHENPROCOUMON [Concomitant]
     Active Substance: PHENPROCOUMON
  9. IPRATROPIUM [Concomitant]
     Active Substance: IPRATROPIUM
  10. PRIMPERAN [Concomitant]
     Active Substance: METOCLOPRAMIDE HYDROCHLORIDE
  11. PREDNISOLONE. [Concomitant]
     Active Substance: PREDNISOLONE
  12. FINASTERIDE. [Concomitant]
     Active Substance: FINASTERIDE
  13. VANCOMYCIN [Suspect]
     Active Substance: VANCOMYCIN
     Indication: WOUND INFECTION
     Route: 042
  14. NYSTATIN/NYSTATIN/LIPOSOME [Concomitant]
  15. OXYCODONE [Concomitant]
     Active Substance: OXYCODONE
  16. OXYCONTIN [Concomitant]
     Active Substance: OXYCODONE HYDROCHLORIDE
  17. CEFTRIAXONE. [Concomitant]
     Active Substance: CEFTRIAXONE
  18. PHYTOMENADIONE [Concomitant]
     Active Substance: PHYTONADIONE
  19. FUROSEMIDE. [Concomitant]
     Active Substance: FUROSEMIDE
  20. DROPERIDOL/DROPERIDOL LACTATE [Concomitant]
  21. ONDANSETRON [Concomitant]
     Active Substance: ONDANSETRON

REACTIONS (2)
  - Linear IgA disease [Recovered/Resolved]
  - Skin lesion [Recovered/Resolved]
